FAERS Safety Report 9009364 (Version 1)
Quarter: 2013Q1

REPORT INFORMATION
  Report Type: Spontaneous
  Country: US (occurrence: US)
  Receive Date: 20130111
  Receipt Date: 20130111
  Transmission Date: 20140127
  Serious: Yes (Other)
  Sender: FDA-Public Use
  Company Number: US-009507513-0909USA03397

PATIENT
  Age: 23 Month
  Sex: Male
  Weight: 13.61 kg

DRUGS (2)
  1. SINGULAIR [Suspect]
     Indication: ASTHMA
     Dosage: 1 TABLET PER DAY
     Route: 048
     Dates: start: 20090228, end: 20090305
  2. SINGULAIR [Suspect]
     Indication: WHEEZING

REACTIONS (6)
  - Abnormal behaviour [Unknown]
  - Crying [Unknown]
  - Mood altered [Unknown]
  - Screaming [Unknown]
  - Aggression [Unknown]
  - Irritability [Unknown]
